FAERS Safety Report 13296176 (Version 2)
Quarter: 2019Q1

REPORT INFORMATION
  Report Type: Spontaneous
  Country: ES (occurrence: ES)
  Receive Date: 20170304
  Receipt Date: 20190330
  Transmission Date: 20190417
  Serious: Yes (Other)
  Sender: FDA-Public Use
  Company Number: ES-ACCORD-048749

PATIENT
  Age: 69 Year
  Sex: Male

DRUGS (3)
  1. CAPECITABINE ACCORD [Suspect]
     Active Substance: CAPECITABINE
     Indication: PANCREATIC CARCINOMA
     Dosage: 750 MG/ M^2 /12 H DAY 1 TO DAY 14, N SHOTS PER FREQUENCY UNIT: 2, FREQUENCY UNIT: CYCLIC 0
  2. TEMOZOLOMIDE. [Suspect]
     Active Substance: TEMOZOLOMIDE
     Indication: PRODUCT USED FOR UNKNOWN INDICATION
     Dosage: 200 MG/M /24 H DAY 10 TO DAY 14
  3. TEMOZOLOMIDE SUN [Suspect]
     Active Substance: TEMOZOLOMIDE
     Indication: PANCREATIC CARCINOMA
     Dosage: 200 MG/M2 /24H DAY 10 TO DAY 14 DOSE UNIT FREQUENCY:280 MGMILLIGRAMS DOSE PER DOSE:1 MG-MILLIGRAMS
     Route: 048
     Dates: start: 20150430

REACTIONS (2)
  - Chromatopsia [Recovering/Resolving]
  - Night blindness [Recovering/Resolving]

NARRATIVE: CASE EVENT DATE: 20150713
